FAERS Safety Report 10557141 (Version 1)
Quarter: 2014Q4

REPORT INFORMATION
  Report Type: Spontaneous
  Country: US (occurrence: US)
  Receive Date: 20141031
  Receipt Date: 20141031
  Transmission Date: 20150529
  Serious: Yes (Death, Other)
  Sender: FDA-Public Use
  Company Number: US-009507513-1410USA014362

PATIENT
  Age: 65 Year
  Sex: Male

DRUGS (1)
  1. KEYTRUDA [Suspect]
     Active Substance: PEMBROLIZUMAB
     Indication: NEUROENDOCRINE CARCINOMA OF THE SKIN
     Dosage: 2 MG/KG, Q3W,PATIENT ONLY HAD 2 DOSES
     Route: 042
     Dates: start: 201409

REACTIONS (2)
  - Hepatic failure [Fatal]
  - Dialysis [Fatal]

NARRATIVE: CASE EVENT DATE: 201410
